FAERS Safety Report 24742097 (Version 13)
Quarter: 2025Q1

REPORT INFORMATION
  Report Type: Report from Study
  Country: CA (occurrence: CA)
  Receive Date: 20241217
  Receipt Date: 20250331
  Transmission Date: 20250409
  Serious: Yes (Other)
  Sender: CSL BEHRING
  Company Number: CA-BEH-2024187472

PATIENT
  Age: 81 Year
  Sex: Female
  Weight: 65 kg

DRUGS (10)
  1. HIZENTRA [Suspect]
     Active Substance: HUMAN IMMUNOGLOBULIN G
     Indication: Secondary immunodeficiency
     Dosage: 8 G, QW
     Route: 065
     Dates: start: 20240806
  2. HIZENTRA [Suspect]
     Active Substance: HUMAN IMMUNOGLOBULIN G
     Dosage: 8 G, QW
     Route: 058
     Dates: start: 20240806
  3. HIZENTRA [Suspect]
     Active Substance: HUMAN IMMUNOGLOBULIN G
     Route: 065
  4. HIZENTRA [Suspect]
     Active Substance: HUMAN IMMUNOGLOBULIN G
     Dosage: 8 G, QW
     Route: 065
     Dates: start: 20240806
  5. HIZENTRA [Suspect]
     Active Substance: HUMAN IMMUNOGLOBULIN G
     Dosage: QW. (STRENGTH: 8G)
     Route: 065
     Dates: start: 20240806
  6. HIZENTRA [Suspect]
     Active Substance: HUMAN IMMUNOGLOBULIN G
     Dosage: 8 G, QW (STRENGTH: 8G)
     Route: 065
     Dates: start: 20240806
  7. HIZENTRA [Suspect]
     Active Substance: HUMAN IMMUNOGLOBULIN G
     Dosage: QW (STRENGTH: 8G)
     Route: 058
     Dates: start: 20240806
  8. HIZENTRA [Suspect]
     Active Substance: HUMAN IMMUNOGLOBULIN G
     Dosage: QW (STRENGTH: 8G)
     Route: 058
     Dates: start: 20240806
  9. AVAPRO [Concomitant]
     Active Substance: IRBESARTAN
     Indication: Hypertension
  10. IRON [Concomitant]
     Active Substance: IRON

REACTIONS (37)
  - Haematochezia [Unknown]
  - Abdominal pain [Unknown]
  - Sleep disorder due to general medical condition, insomnia type [Unknown]
  - Injection site swelling [Unknown]
  - Haemoglobin abnormal [Unknown]
  - Injection site swelling [Not Recovered/Not Resolved]
  - Intentional dose omission [Unknown]
  - Injection site swelling [Unknown]
  - Injection site erythema [Unknown]
  - Infusion site swelling [Unknown]
  - Fatigue [Unknown]
  - Infusion site swelling [Unknown]
  - Infusion site bruising [Recovering/Resolving]
  - Infusion site erythema [Unknown]
  - Infusion site swelling [Unknown]
  - Injection site pruritus [Unknown]
  - Injection site erythema [Unknown]
  - Injection site swelling [Unknown]
  - Injection site swelling [Unknown]
  - Faeces discoloured [Unknown]
  - Chills [Unknown]
  - Dry throat [Unknown]
  - Malaise [Unknown]
  - Cough [Unknown]
  - Rhinorrhoea [Unknown]
  - Injection site oedema [Unknown]
  - Injection site swelling [Unknown]
  - Injection site oedema [Unknown]
  - Infusion site swelling [Unknown]
  - Malaise [Unknown]
  - Back pain [Recovered/Resolved]
  - Cough [Unknown]
  - Infusion site oedema [Unknown]
  - Infusion site swelling [Unknown]
  - Bronchitis [Unknown]
  - Nerve compression [Unknown]
  - Therapy interrupted [Unknown]

NARRATIVE: CASE EVENT DATE: 20241201
